FAERS Safety Report 6603796-3 (Version None)
Quarter: 2010Q1

REPORT INFORMATION
  Report Type: 
  Country: None (occurrence: None)
  Receive Date: 20100226
  Receipt Date: 20090203
  Transmission Date: 20100710
  Serious: No
  Sender: FDA-Public Use
  Company Number: A0766608A

PATIENT
  Age: 29 Year
  Sex: Female

DRUGS (3)
  1. LAMICTAL CD [Suspect]
     Dosage: 100MG TWICE PER DAY
     Route: 048
     Dates: start: 20080501
  2. KLONOPIN [Concomitant]
  3. TOPAMAX [Concomitant]

REACTIONS (2)
  - DISCOMFORT [None]
  - RASH [None]
